FAERS Safety Report 11857437 (Version 1)
Quarter: 2015Q4

REPORT INFORMATION
  Report Type: Report from Study
  Country: MX (occurrence: MX)
  Receive Date: 20151221
  Receipt Date: 20151221
  Transmission Date: 20160305
  Serious: Yes (Death)
  Sender: FDA-Public Use
  Company Number: PHHY2015MX166724

PATIENT
  Sex: Male

DRUGS (2)
  1. MIFLONIDE [Suspect]
     Active Substance: BUDESONIDE
     Indication: PULMONARY FIBROSIS
     Dosage: UNK UNK, QD
     Route: 065
  2. FORADIL [Suspect]
     Active Substance: FORMOTEROL FUMARATE
     Indication: PULMONARY FIBROSIS
     Dosage: UNK UNK, QD
     Route: 065

REACTIONS (3)
  - Product use issue [Unknown]
  - Respiratory failure [Fatal]
  - Pulmonary fibrosis [Fatal]
